FAERS Safety Report 25588615 (Version 1)
Quarter: 2025Q3

REPORT INFORMATION
  Report Type: Spontaneous
  Country: US (occurrence: US)
  Receive Date: 20250722
  Receipt Date: 20250722
  Transmission Date: 20251020
  Serious: No
  Sender: BAUSCH AND LOMB
  Company Number: US-BAUSCHBL-2025BNL012750

PATIENT
  Age: 95 Year
  Sex: Female

DRUGS (1)
  1. LATANOPROST [Suspect]
     Active Substance: LATANOPROST
     Indication: Product used for unknown indication
     Dosage: 1 DROP IN EACH EYE AT NIGHT
     Route: 047

REACTIONS (5)
  - Eye pain [Unknown]
  - Product colour issue [Unknown]
  - Product quality issue [Unknown]
  - Liquid product physical issue [Unknown]
  - Poor quality product administered [Unknown]
